FAERS Safety Report 15894605 (Version 1)
Quarter: 2019Q1

REPORT INFORMATION
  Report Type: Report from Study
  Country: US (occurrence: US)
  Receive Date: 20190131
  Receipt Date: 20190131
  Transmission Date: 20190417
  Serious: Yes (Other)
  Sender: FDA-Public Use
  Company Number: US-SAKK-2019SA022963AA

PATIENT
  Age: 71 Year
  Sex: Female

DRUGS (1)
  1. INSULIN GLARGINE [Suspect]
     Active Substance: INSULIN GLARGINE
     Indication: DIABETES MELLITUS
     Dosage: 50 U, BID
     Route: 058

REACTIONS (2)
  - Inappropriate schedule of product administration [Unknown]
  - Vascular stent insertion [Unknown]

NARRATIVE: CASE EVENT DATE: 20181012
